FAERS Safety Report 4285806-4 (Version None)
Quarter: 2004Q1

REPORT INFORMATION
  Report Type: 
  Country: None (occurrence: None)
  Receive Date: 20040203
  Receipt Date: 20040121
  Transmission Date: 20041129
  Serious: Yes (Hospitalization, Disabling)
  Sender: FDA-Public Use
  Company Number: 002#4#2003-00243 (0)

PATIENT
  Age: 48 Year
  Sex: Female

DRUGS (2)
  1. PPA/CPM-75/8MG(OTC) (PHENYLPROPANOLAMINE HCL, CHLORPHENIRAMINE [Suspect]
     Indication: NASOPHARYNGITIS
     Dosage: ASNEC. ORAL
     Route: 048
     Dates: start: 19980328
  2. ADIPEX [Concomitant]

REACTIONS (11)
  - ANEURYSM [None]
  - ARTERIOVENOUS MALFORMATION [None]
  - BLOOD PRESSURE DIASTOLIC DECREASED [None]
  - BLOOD PRESSURE SYSTOLIC INCREASED [None]
  - COMA [None]
  - DIFFICULT TO WEAN FROM VENTILATOR [None]
  - GENERAL PHYSICAL HEALTH DETERIORATION [None]
  - HAEMORRHAGIC STROKE [None]
  - HEMIPLEGIA [None]
  - NAUSEA [None]
  - THROMBOSIS [None]
